FAERS Safety Report 7246148-8 (Version None)
Quarter: 2011Q1

REPORT INFORMATION
  Report Type: 
  Country: None (occurrence: None)
  Receive Date: 20110126
  Receipt Date: 20110119
  Transmission Date: 20110831
  Serious: Yes (Other)
  Sender: FDA-Public Use
  Company Number: A0908773A

PATIENT
  Sex: Female

DRUGS (1)
  1. PAXIL [Suspect]
     Indication: DEPRESSION
     Route: 048

REACTIONS (9)
  - DIZZINESS [None]
  - WEIGHT INCREASED [None]
  - VISION BLURRED [None]
  - DRUG INEFFECTIVE [None]
  - ALTERED STATE OF CONSCIOUSNESS [None]
  - NAUSEA [None]
  - ALCOHOL USE [None]
  - TENSION [None]
  - WITHDRAWAL SYNDROME [None]
